FAERS Safety Report 8504152-3 (Version None)
Quarter: 2012Q3

REPORT INFORMATION
  Report Type: 
  Country: None (occurrence: None)
  Receive Date: 20120711
  Receipt Date: 20120705
  Transmission Date: 20120928
  Serious: Yes (Hospitalization)
  Sender: FDA-Public Use
  Company Number: DE-TEVA-346771GER

PATIENT
  Sex: Female
  Weight: 49 kg

DRUGS (10)
  1. TRASTUZUMAB [Suspect]
     Route: 042
     Dates: start: 20120503
  2. DOXORUBICIN HCL [Suspect]
     Indication: BREAST CANCER
     Route: 042
     Dates: start: 20120319
  3. PACLITAXEL [Suspect]
     Indication: BREAST CANCER
     Route: 042
     Dates: start: 20120319
  4. LAPATINIB [Suspect]
     Indication: BREAST CANCER
     Dosage: 500 MILLIGRAM;
     Route: 048
     Dates: start: 20120319
  5. CARBOPLATIN [Suspect]
     Indication: BREAST CANCER
     Route: 042
     Dates: start: 20120319
  6. PACLITAXEL [Suspect]
     Route: 042
     Dates: start: 20120625
  7. DOXORUBICIN HCL [Suspect]
     Route: 042
     Dates: start: 20120503
  8. TRASTUZUMAB [Suspect]
     Indication: BREAST CANCER
     Route: 042
     Dates: start: 20120319
  9. CARBOPLATIN [Suspect]
     Route: 042
     Dates: start: 20120625
  10. FILGRASTIM [Concomitant]
     Dates: start: 20120627, end: 20120628

REACTIONS (2)
  - DYSPNOEA [None]
  - PNEUMONIA [None]
